FAERS Safety Report 8522209-8 (Version None)
Quarter: 2012Q3

REPORT INFORMATION
  Report Type: 
  Country: None (occurrence: None)
  Receive Date: 20120709
  Receipt Date: 20120705
  Transmission Date: 20120928
  Serious: Yes (Hospitalization, Disabling)
  Sender: FDA-Public Use
  Company Number: ACO_30880_2012

PATIENT
  Age: 63 Year
  Sex: Male

DRUGS (1)
  1. AMPYRA [Suspect]
     Indication: MULTIPLE SCLEROSIS
     Dosage: 10 MG, BID
     Dates: start: 20100701, end: 20120621

REACTIONS (3)
  - MULTIPLE SCLEROSIS RELAPSE [None]
  - ABASIA [None]
  - CENTRAL NERVOUS SYSTEM LESION [None]
